FAERS Safety Report 19793660 (Version 1)
Quarter: 2021Q3

REPORT INFORMATION
  Report Type: Report from Study
  Country: US (occurrence: US)
  Receive Date: 20210906
  Receipt Date: 20210906
  Transmission Date: 20211014
  Serious: Yes (Hospitalization, Other)
  Sender: FDA-Public Use
  Company Number: US-BRISTOL-MYERS SQUIBB COMPANY-BMS-2021-087197

PATIENT
  Age: 18 Year
  Sex: Female
  Weight: 51.7 kg

DRUGS (4)
  1. DACARBAZINE. [Suspect]
     Active Substance: DACARBAZINE
     Indication: HODGKIN^S DISEASE
     Dosage: 585 MILLIGRAM
     Route: 065
     Dates: start: 20210608, end: 20210805
  2. VINBLASTINE SULFATE. [Suspect]
     Active Substance: VINBLASTINE SULFATE
     Indication: HODGKIN^S DISEASE
     Dosage: 9.36 MILLIGRAM
     Route: 065
     Dates: start: 20210608, end: 20210805
  3. NIVOLUMAB [Suspect]
     Active Substance: NIVOLUMAB
     Indication: HODGKIN^S DISEASE
     Dosage: 240 MILLIGRAM
     Route: 065
     Dates: start: 20210608, end: 20210805
  4. DOXORUBICIN HYDROCHLORIDE. [Suspect]
     Active Substance: DOXORUBICIN HYDROCHLORIDE
     Indication: HODGKIN^S DISEASE
     Dosage: 39 MILLIGRAM
     Route: 065
     Dates: start: 20210608, end: 20210805

REACTIONS (2)
  - Ejection fraction decreased [Unknown]
  - Cardiomyopathy acute [Unknown]

NARRATIVE: CASE EVENT DATE: 20210824
